FAERS Safety Report 7346754-6 (Version None)
Quarter: 2011Q1

REPORT INFORMATION
  Report Type: 
  Country: None (occurrence: None)
  Receive Date: 20110311
  Receipt Date: 20110228
  Transmission Date: 20110831
  Serious: Yes (Hospitalization)
  Sender: FDA-Public Use
  Company Number: ES-JNJFOC-20110206614

PATIENT
  Sex: Female
  Weight: 84 kg

DRUGS (9)
  1. PARACETAMOL [Concomitant]
     Route: 048
  2. PREDNISONE [Concomitant]
     Route: 048
  3. GOLIMUMAB [Suspect]
     Indication: PSORIATIC ARTHROPATHY
     Route: 058
  4. ALPRAZOLAM [Concomitant]
     Route: 048
  5. PARAFFIN [Concomitant]
     Route: 048
  6. GOLIMUMAB [Suspect]
     Route: 058
  7. GOLIMUMAB [Suspect]
     Route: 058
  8. NORFLOXACIN [Concomitant]
     Route: 048
  9. OMEPRAZOLE [Concomitant]
     Route: 048

REACTIONS (1)
  - THROMBOCYTOPENIA [None]
